FAERS Safety Report 11064412 (Version 1)
Quarter: 2015Q2

REPORT INFORMATION
  Report Type: Spontaneous
  Country: CZ (occurrence: CZ)
  Receive Date: 20150424
  Receipt Date: 20150424
  Transmission Date: 20150821
  Serious: Yes (Other)
  Sender: FDA-Public Use
  Company Number: CZ-PFIZER INC-2015136541

PATIENT
  Sex: Male
  Weight: 100 kg

DRUGS (6)
  1. NITROGLYCERINE [Concomitant]
     Active Substance: NITROGLYCERIN
     Dosage: UNK
     Dates: start: 20100624
  2. EGILOK [Concomitant]
     Active Substance: METOPROLOL TARTRATE
     Dosage: 25 MG, 2X/DAY
  3. ALPRAZOLAM. [Suspect]
     Active Substance: ALPRAZOLAM
     Dosage: 0.5 MG, 3X/DAY
     Route: 048
  4. ATORIS [Concomitant]
     Active Substance: ATORVASTATIN CALCIUM
     Dosage: UNK
     Dates: start: 20100624
  5. ALPRAZOLAM. [Suspect]
     Active Substance: ALPRAZOLAM
     Dosage: 0.5 MG, AS NEEDED
     Route: 048
  6. ANOPYRIN [Concomitant]
     Active Substance: ASPIRIN
     Dosage: UNK
     Dates: start: 20100624

REACTIONS (2)
  - Ventricular extrasystoles [Unknown]
  - Palpitations [Unknown]
